FAERS Safety Report 15853158 (Version 1)
Quarter: 2019Q1

REPORT INFORMATION
  Report Type: Spontaneous
  Country: US (occurrence: US)
  Receive Date: 20190119
  Receipt Date: 20190119
  Transmission Date: 20190417
  Serious: Yes (Other)
  Sender: FDA-Public Use
  Company Number: None

PATIENT
  Age: 33 Year
  Sex: Female

DRUGS (4)
  1. TUMS [Concomitant]
     Active Substance: CALCIUM CARBONATE
  2. BENADRYL [Concomitant]
     Active Substance: DIPHENHYDRAMINE HYDROCHLORIDE
  3. ADVIL/TYLENOL [Concomitant]
  4. AMLODIPINE [Suspect]
     Active Substance: AMLODIPINE BESYLATE
     Indication: HYPERTENSION
     Dosage: ?          QUANTITY:30 TABLET(S);?
     Route: 048
     Dates: start: 20190118, end: 20190119

REACTIONS (7)
  - Headache [None]
  - Oropharyngeal pain [None]
  - Ear discomfort [None]
  - Cardiac flutter [None]
  - Feeling abnormal [None]
  - Flushing [None]
  - Pruritus [None]

NARRATIVE: CASE EVENT DATE: 20190119
